FAERS Safety Report 22071887 (Version 4)
Quarter: 2024Q1

REPORT INFORMATION
  Report Type: Report from Study
  Country: GB (occurrence: GB)
  Receive Date: 20230307
  Receipt Date: 20240308
  Transmission Date: 20240409
  Serious: Yes (Other)
  Sender: FDA-Public Use
  Company Number: GB-002147023-NVSC2022GB204733

PATIENT
  Sex: Female

DRUGS (1)
  1. MAYZENT [Suspect]
     Active Substance: SIPONIMOD
     Indication: Multiple sclerosis
     Dosage: 2 MG, QD (TITRATION PACK FOR FIRST 5 DAYS)
     Route: 048
     Dates: start: 20220905

REACTIONS (20)
  - Cataract [Unknown]
  - Lower respiratory tract infection [Not Recovered/Not Resolved]
  - Infection [Recovered/Resolved]
  - Confusional state [Unknown]
  - Feeling abnormal [Unknown]
  - Disturbance in attention [Recovered/Resolved]
  - Dyspnoea [Unknown]
  - Fall [Unknown]
  - Contusion [Recovered/Resolved]
  - Muscle strain [Recovered/Resolved]
  - Eye pain [Unknown]
  - Ocular discomfort [Unknown]
  - Sinus pain [Not Recovered/Not Resolved]
  - Epiretinal membrane [Unknown]
  - Optic disc drusen [Unknown]
  - Fatigue [Not Recovered/Not Resolved]
  - Headache [Unknown]
  - Erythema [Unknown]
  - Product dose omission issue [Unknown]
  - COVID-19 [Unknown]

NARRATIVE: CASE EVENT DATE: 20230101
